FAERS Safety Report 9677466 (Version 1)
Quarter: 2013Q4

REPORT INFORMATION
  Report Type: Spontaneous
  Country: FI (occurrence: FI)
  Receive Date: 20131108
  Receipt Date: 20131108
  Transmission Date: 20140711
  Serious: Yes (Hospitalization, Congenital Anomaly)
  Sender: FDA-Public Use
  Company Number: PHHY2013FI124570

PATIENT
  Sex: Male

DRUGS (5)
  1. FEMARA [Suspect]
     Indication: INFERTILITY
     Dosage: UNK UKN, UNK
     Route: 064
  2. FEMARA [Suspect]
     Indication: OFF LABEL USE
  3. DEPRAKINE - SLOW RELEASE [Suspect]
     Indication: EPILEPSY
     Dosage: UNK UKN, UNK
     Route: 064
  4. METFOREM [Suspect]
     Indication: POLYCYSTIC OVARIES
     Dosage: UNK UKN, UNK
     Route: 064
  5. FOLVITE [Suspect]
     Indication: PROPHYLAXIS
     Dosage: UNK UKN, UNK
     Route: 064

REACTIONS (1)
  - Exomphalos [Recovered/Resolved with Sequelae]
